FAERS Safety Report 26141112 (Version 2)
Quarter: 2025Q4

REPORT INFORMATION
  Report Type: Spontaneous
  Country: GB (occurrence: GB)
  Receive Date: 20251210
  Receipt Date: 20251223
  Transmission Date: 20260118
  Serious: Yes (Death, Other)
  Sender: IDORSIA PHARMACEUTICALS
  Company Number: GB-IDORSIA-012881-2025-GB

PATIENT
  Sex: Female

DRUGS (1)
  1. QUVIVIQ [Suspect]
     Active Substance: DARIDOREXANT
     Indication: Product used for unknown indication
     Dosage: UNK
     Route: 048
     Dates: start: 202501

REACTIONS (1)
  - Dementia [Fatal]
